FAERS Safety Report 9558849 (Version 1)
Quarter: 2013Q3

REPORT INFORMATION
  Report Type: Spontaneous
  Country: US (occurrence: GB)
  Receive Date: 20130926
  Receipt Date: 20130926
  Transmission Date: 20140515
  Serious: Yes (Death)
  Sender: FDA-Public Use
  Company Number: US-JNJFOC-20130912736

PATIENT
  Age: 3 Year
  Sex: 0

DRUGS (2)
  1. TYLENOL CHILD UNSPECIFIED [Suspect]
     Route: 065
  2. TYLENOL CHILD UNSPECIFIED [Suspect]
     Indication: PRODUCT USED FOR UNKNOWN INDICATION
     Route: 065

REACTIONS (1)
  - Toxicity to various agents [Fatal]
